FAERS Safety Report 23412263 (Version 1)
Quarter: 2024Q1

REPORT INFORMATION
  Report Type: Spontaneous
  Country: US (occurrence: US)
  Receive Date: 20240117
  Receipt Date: 20240117
  Transmission Date: 20240409
  Serious: Yes (Other)
  Sender: FDA-Public Use
  Company Number: US-BRISTOL-MYERS SQUIBB COMPANY-2024-008444

PATIENT
  Age: 51 Year
  Sex: Male
  Weight: 161.93 kg

DRUGS (1)
  1. REVLIMID [Suspect]
     Active Substance: LENALIDOMIDE
     Indication: Follicular lymphoma
     Dosage: 21D ON 7D OFF
     Route: 048
     Dates: start: 20230601, end: 20240101

REACTIONS (1)
  - Malignant neoplasm progression [Unknown]
